FAERS Safety Report 7070362-8 (Version None)
Quarter: 2010Q4

REPORT INFORMATION
  Report Type: 
  Country: None (occurrence: None)
  Receive Date: 20101029
  Receipt Date: 20101021
  Transmission Date: 20110411
  Serious: Yes (Hospitalization)
  Sender: FDA-Public Use
  Company Number: US-BIOGENIDEC-2010BI020425

PATIENT
  Age: 26 Year
  Sex: Female
  Weight: 104 kg

DRUGS (1)
  1. TYSABRI [Suspect]
     Indication: MULTIPLE SCLEROSIS
     Route: 042
     Dates: start: 20091223

REACTIONS (3)
  - LIVER FUNCTION TEST ABNORMAL [None]
  - PROTEIN C DEFICIENCY [None]
  - PULMONARY EMBOLISM [None]
